FAERS Safety Report 4881706-7 (Version None)
Quarter: 2005Q4

REPORT INFORMATION
  Report Type: 
  Country: None (occurrence: None)
  Receive Date: 20051201
  Receipt Date: 20050725
  Transmission Date: 20060501
  Serious: No
  Sender: FDA-Public Use
  Company Number: 2005PV000579

PATIENT
  Age: 43 Year
  Sex: Male
  Weight: 94.3482 kg

DRUGS (9)
  1. BYETTA [Suspect]
     Indication: DIABETES MELLITUS NON-INSULIN-DEPENDENT
     Dosage: 5 MCG; BID; SC
     Route: 058
     Dates: start: 20050628
  2. AVANDIA [Concomitant]
  3. METFORMIN HCL [Concomitant]
  4. METFORMIN HCL [Concomitant]
  5. GLYBURIDE [Concomitant]
  6. METFORMIN HCL [Concomitant]
  7. TRICOR [Concomitant]
  8. LEVOXYL [Concomitant]
  9. ASPIRIN [Concomitant]

REACTIONS (3)
  - ITCHING SCAR [None]
  - PRURITUS [None]
  - RASH [None]
